FAERS Safety Report 6479863-4 (Version None)
Quarter: 2009Q4

REPORT INFORMATION
  Report Type: 
  Country: None (occurrence: None)
  Receive Date: 20091208
  Receipt Date: 20091125
  Transmission Date: 20100525
  Serious: Yes (Other)
  Sender: FDA-Public Use
  Company Number: PHHY2009BR52298

PATIENT
  Age: 44 Week
  Sex: Female
  Weight: 78 kg

DRUGS (3)
  1. CODATEN [Suspect]
     Indication: NEURALGIA
     Dosage: 50 MG, Q12H
     Route: 048
     Dates: start: 20091119
  2. CODATEN [Suspect]
     Dosage: 1 TABLET PER DAY
     Route: 048
  3. SIMVASTATIN [Concomitant]
     Indication: BLOOD CHOLESTEROL ABNORMAL
     Dosage: 1 TABLET PER DAY
     Route: 048

REACTIONS (6)
  - CONFUSIONAL STATE [None]
  - DIZZINESS [None]
  - FEELING ABNORMAL [None]
  - PRESYNCOPE [None]
  - VERTIGO [None]
  - VISION BLURRED [None]
